FAERS Safety Report 16632775 (Version 2)
Quarter: 2019Q3

REPORT INFORMATION
  Report Type: Report from Study
  Country: US (occurrence: US)
  Receive Date: 20190725
  Receipt Date: 20190905
  Transmission Date: 20191004
  Serious: Yes (Other)
  Sender: FDA-Public Use
  Company Number: US-JNJFOC-20180727847

PATIENT
  Age: 75 Year
  Sex: Male

DRUGS (10)
  1. IMBRUVICA [Suspect]
     Active Substance: IBRUTINIB
     Dosage: 280 MG, QD
     Route: 048
     Dates: start: 201802, end: 20180503
  2. IMBRUVICA [Suspect]
     Active Substance: IBRUTINIB
     Dosage: 140 MG, QD
     Route: 048
     Dates: start: 20180504, end: 20180719
  3. IMBRUVICA [Suspect]
     Active Substance: IBRUTINIB
     Dosage: 140 MG, QD
     Route: 048
     Dates: start: 20180720, end: 20181019
  4. LYRICA [Concomitant]
     Active Substance: PREGABALIN
  5. IMBRUVICA [Suspect]
     Active Substance: IBRUTINIB
     Indication: CHRONIC LYMPHOCYTIC LEUKAEMIA
     Dosage: 140 MG, QD
     Route: 048
     Dates: start: 20180406
  6. HYDROCODONE [Suspect]
     Active Substance: HYDROCODONE
     Indication: PRODUCT USED FOR UNKNOWN INDICATION
     Dosage: UNK
     Route: 065
  7. IMBRUVICA [Suspect]
     Active Substance: IBRUTINIB
     Dosage: 140 MG, QD
     Route: 048
     Dates: start: 20181020
  8. IMBRUVICA [Suspect]
     Active Substance: IBRUTINIB
     Indication: CHRONIC LYMPHOCYTIC LEUKAEMIA
     Dosage: 420 MG, QD
     Route: 048
     Dates: start: 20171207, end: 20180503
  9. KEPPRA [Concomitant]
     Active Substance: LEVETIRACETAM
  10. MULTIVITAMINS [Concomitant]
     Active Substance: VITAMINS

REACTIONS (17)
  - Joint swelling [Not Recovered/Not Resolved]
  - Constipation [Unknown]
  - Hyperhidrosis [Unknown]
  - Contusion [Not Recovered/Not Resolved]
  - Muscle spasms [Unknown]
  - Spinal stenosis [Unknown]
  - Adverse event [Unknown]
  - Headache [Unknown]
  - Abdominal pain upper [Unknown]
  - Arthralgia [Unknown]
  - Exostosis [Unknown]
  - Epistaxis [Unknown]
  - Peripheral swelling [Not Recovered/Not Resolved]
  - Dizziness [Unknown]
  - Pain in extremity [Unknown]
  - Pruritus [Unknown]
  - Vision blurred [Unknown]

NARRATIVE: CASE EVENT DATE: 20180701
